FAERS Safety Report 6389781-8 (Version None)
Quarter: 2009Q4

REPORT INFORMATION
  Report Type: 
  Country: None (occurrence: None)
  Receive Date: 20091003
  Receipt Date: 20090928
  Transmission Date: 20100525
  Serious: No
  Sender: FDA-Public Use
  Company Number: 20097195

PATIENT
  Sex: Male

DRUGS (3)
  1. LIORESAL [Suspect]
     Indication: MUSCLE SPASTICITY
     Dosage: MCG, DAILY, INTRATHECAL
     Route: 037
  2. CLONIDINE [Concomitant]
  3. MORPHINE [Concomitant]

REACTIONS (8)
  - DRUG WITHDRAWAL SYNDROME [None]
  - HALLUCINATION [None]
  - IMPLANT SITE SCAR [None]
  - INFLUENZA LIKE ILLNESS [None]
  - OVERDOSE [None]
  - PYREXIA [None]
  - VOMITING [None]
  - WEIGHT DECREASED [None]
